FAERS Safety Report 4752932-2 (Version None)
Quarter: 2005Q3

REPORT INFORMATION
  Report Type: 
  Country: None (occurrence: None)
  Receive Date: 20050823
  Receipt Date: 20050307
  Transmission Date: 20060218
  Serious: Yes (Other)
  Sender: FDA-Public Use
  Company Number: 17071

PATIENT
  Sex: Male

DRUGS (1)
  1. ETOPOSIDE [Suspect]
     Indication: LARGE CELL LUNG CANCER STAGE III
     Dosage: 100MG/1/IV
     Route: 042
     Dates: start: 20050307

REACTIONS (4)
  - DYSPNOEA [None]
  - FLUSHING [None]
  - PHOTOPSIA [None]
  - VITREOUS FLOATERS [None]
